FAERS Safety Report 5314089-9 (Version None)
Quarter: 2007Q2

REPORT INFORMATION
  Report Type: 
  Country: None (occurrence: None)
  Receive Date: 20070501
  Receipt Date: 20070419
  Transmission Date: 20071010
  Serious: Yes (Other)
  Sender: FDA-Public Use
  Company Number: US-PFIZER INC-2007032837

PATIENT
  Age: 70 Year
  Sex: Female
  Weight: 99.8 kg

DRUGS (8)
  1. CHANTIX [Suspect]
     Indication: SMOKING CESSATION THERAPY
  2. ALL OTHER THERAPEUTIC PRODUCTS [Concomitant]
  3. METHOTREXATE [Concomitant]
  4. RANITIDINE [Concomitant]
  5. KLONOPIN [Concomitant]
  6. PAROXETINE [Concomitant]
     Dosage: TEXT:30MG-FREQ:DAILY
  7. ACETYLSALICYLIC ACID SRT [Concomitant]
  8. FOLIC ACID [Concomitant]

REACTIONS (2)
  - DIZZINESS [None]
  - GAIT DISTURBANCE [None]
